FAERS Safety Report 25761317 (Version 1)
Quarter: 2025Q3

REPORT INFORMATION
  Report Type: Spontaneous
  Country: EU (occurrence: EU)
  Receive Date: 20250904
  Receipt Date: 20250904
  Transmission Date: 20251021
  Serious: Yes (Other)
  Sender: PFIZER
  Company Number: EU-JNJFOC-20241235316

PATIENT
  Sex: Female
  Weight: 47 kg

DRUGS (7)
  1. PEMETREXED [Suspect]
     Active Substance: PEMETREXED
     Indication: Non-small cell lung cancer
     Route: 065
  2. AMIVANTAMAB [Suspect]
     Active Substance: AMIVANTAMAB
     Indication: Non-small cell lung cancer stage IV
     Route: 065
  3. AMIVANTAMAB [Suspect]
     Active Substance: AMIVANTAMAB
     Route: 065
     Dates: start: 20250313
  4. AMIVANTAMAB [Suspect]
     Active Substance: AMIVANTAMAB
     Route: 065
     Dates: start: 20250327
  5. AMIVANTAMAB [Suspect]
     Active Substance: AMIVANTAMAB
     Route: 065
     Dates: start: 20250406
  6. AMIVANTAMAB [Suspect]
     Active Substance: AMIVANTAMAB
     Route: 065
     Dates: start: 20250418
  7. AMIVANTAMAB [Suspect]
     Active Substance: AMIVANTAMAB
     Route: 065
     Dates: start: 20250514

REACTIONS (3)
  - Arrhythmia [Unknown]
  - General physical health deterioration [Unknown]
  - Folliculitis [Unknown]
